FAERS Safety Report 5749079-5 (Version None)
Quarter: 2008Q2

REPORT INFORMATION
  Report Type: 
  Country: None (occurrence: None)
  Receive Date: 20080527
  Receipt Date: 20080522
  Transmission Date: 20081010
  Serious: Yes (Hospitalization)
  Sender: FDA-Public Use
  Company Number: HU-BRISTOL-MYERS SQUIBB COMPANY-14202055

PATIENT
  Age: 27 Year
  Sex: Female

DRUGS (2)
  1. ABILIFY [Suspect]
  2. SEROQUEL [Suspect]

REACTIONS (2)
  - ACUTE PSYCHOSIS [None]
  - NEUROLEPTIC MALIGNANT SYNDROME [None]
